FAERS Safety Report 13641255 (Version 3)
Quarter: 2021Q4

REPORT INFORMATION
  Report Type: Report from Study
  Country: US (occurrence: US)
  Receive Date: 20170612
  Receipt Date: 20211214
  Transmission Date: 20220303
  Serious: Yes (Other)
  Sender: FDA-Public Use
  Company Number: US-AMGEN-USASL2017085988

PATIENT
  Age: 46 Year
  Sex: Female

DRUGS (1)
  1. ENBREL [Suspect]
     Active Substance: ETANERCEPT
     Indication: Rheumatoid arthritis
     Dosage: 50 MILLIGRAM, QWK
     Route: 065
     Dates: end: 2014

REACTIONS (11)
  - Sinusitis [Unknown]
  - Rheumatoid arthritis [Unknown]
  - Spinal fracture [Unknown]
  - Cerebrospinal fluid leakage [Unknown]
  - Fall [Unknown]
  - Therapeutic product effect decreased [Unknown]
  - Unevaluable event [Unknown]
  - Illness [Unknown]
  - Nasopharyngitis [Unknown]
  - Arthropod bite [Unknown]
  - Eye ulcer [Unknown]

NARRATIVE: CASE EVENT DATE: 20140101
